FAERS Safety Report 8365543-7 (Version None)
Quarter: 2012Q2

REPORT INFORMATION
  Report Type: 
  Country: None (occurrence: None)
  Receive Date: 20120516
  Receipt Date: 20120514
  Transmission Date: 20120825
  Serious: Yes (Hospitalization, Other)
  Sender: FDA-Public Use
  Company Number: US-PFIZER INC-2012117575

PATIENT
  Sex: Male
  Weight: 68.027 kg

DRUGS (4)
  1. METFORMIN [Concomitant]
     Indication: DIABETES MELLITUS
     Dosage: 500 MG, DAILY
  2. NEURONTIN [Suspect]
     Dosage: 800 MG, 4X/DAY
  3. LISINOPRIL [Concomitant]
     Indication: HYPERTENSION
     Dosage: 30 MG, DAILY
  4. NEURONTIN [Suspect]
     Indication: NEURALGIA
     Dosage: 800 MG, 4X/DAY
     Dates: start: 20050101

REACTIONS (4)
  - DIPLEGIA [None]
  - NERVOUS SYSTEM DISORDER [None]
  - FALL [None]
  - LOSS OF CONSCIOUSNESS [None]
